FAERS Safety Report 15782332 (Version 2)
Quarter: 2020Q4

REPORT INFORMATION
  Report Type: Report from Study
  Country: US (occurrence: US)
  Receive Date: 20190102
  Receipt Date: 20201016
  Transmission Date: 20210113
  Serious: Yes (Disabling)
  Sender: FDA-Public Use
  Company Number: US-JNJFOC-20181234276

PATIENT
  Sex: Female

DRUGS (1)
  1. REMICADE [Suspect]
     Active Substance: INFLIXIMAB
     Indication: PSORIATIC ARTHROPATHY
     Route: 042

REACTIONS (1)
  - Lupus-like syndrome [Unknown]

NARRATIVE: CASE EVENT DATE: 2018
